FAERS Safety Report 4533811-2 (Version None)
Quarter: 2004Q4

REPORT INFORMATION
  Report Type: 
  Country: None (occurrence: None)
  Receive Date: 20041221
  Receipt Date: 20041215
  Transmission Date: 20050328
  Serious: Yes (Hospitalization)
  Sender: FDA-Public Use
  Company Number: FR-MERCK-0412FRA00053

PATIENT
  Age: 64 Year
  Sex: Male

DRUGS (9)
  1. ZOCOR [Suspect]
     Indication: HYPERLIPIDAEMIA
     Route: 048
  2. GLICLAZIDE [Suspect]
     Indication: DIABETES MELLITUS
     Route: 048
  3. METFORMIN HCL [Suspect]
     Indication: DIABETES MELLITUS
     Route: 048
  4. BENFLUOREX HYDROCHLORIDE [Suspect]
     Indication: DIABETES MELLITUS
     Route: 048
  5. FLUOXETINE HYDROCHLORIDE [Suspect]
     Route: 048
  6. DONEPEZIL HCL [Suspect]
     Indication: DEMENTIA ALZHEIMER'S TYPE
     Route: 048
     Dates: start: 20030301
  7. TELMISARTAN [Concomitant]
     Route: 048
  8. CLOPIDOGREL BISULFATE [Concomitant]
     Route: 048
  9. PYGEUM AFRICANUM EXTRACT [Concomitant]
     Route: 048

REACTIONS (1)
  - SYNCOPE [None]
